FAERS Safety Report 4318593-1 (Version None)
Quarter: 2004Q1

REPORT INFORMATION
  Report Type: 
  Country: None (occurrence: None)
  Receive Date: 20040316
  Receipt Date: 20040316
  Transmission Date: 20041129
  Serious: Yes (Life-Threatening, Hospitalization)
  Sender: FDA-Public Use
  Company Number: None

PATIENT
  Sex: Male
  Weight: 53.5244 kg

DRUGS (2)
  1. CISPLATIN [Suspect]
     Dosage: 80 MG/M2 =126 MG IV D1
     Route: 042
     Dates: start: 20040212
  2. ETOPOSIDE 100 MG/5 ML [Suspect]
     Dosage: 100 MG/M2 = 157 MG IV D 1-3
     Route: 042
     Dates: start: 20040212, end: 20040214

REACTIONS (8)
  - ASTHENIA [None]
  - BLISTER [None]
  - BODY TEMPERATURE INCREASED [None]
  - HEART RATE INCREASED [None]
  - MENTAL STATUS CHANGES [None]
  - OXYGEN SATURATION DECREASED [None]
  - RASH [None]
  - SKIN DESQUAMATION [None]
